FAERS Safety Report 4360654-5 (Version None)
Quarter: 2004Q2

REPORT INFORMATION
  Report Type: 
  Country: None (occurrence: None)
  Receive Date: 20040518
  Receipt Date: 20040518
  Transmission Date: 20050107
  Serious: Yes (Death)
  Sender: FDA-Public Use
  Company Number: None

PATIENT
  Sex: Male
  Weight: 84.8226 kg

DRUGS (6)
  1. CLOZAPINE [Suspect]
     Indication: SCHIZOPHRENIA
     Dosage: 500 MG/DAY
     Dates: start: 19980101, end: 20040102
  2. DEPAKOTE [Concomitant]
  3. WELLCHOL [Concomitant]
  4. TRICOR [Concomitant]
  5. NIASPAN [Concomitant]
  6. SYNTHROID [Concomitant]

REACTIONS (5)
  - CARDIAC ARREST [None]
  - CIRCULATORY COLLAPSE [None]
  - HEART RATE INCREASED [None]
  - SUDDEN DEATH [None]
  - VOMITING [None]
